FAERS Safety Report 4711541-1 (Version None)
Quarter: 2005Q3

REPORT INFORMATION
  Report Type: 
  Country: None (occurrence: None)
  Receive Date: 20050708
  Receipt Date: 20050708
  Transmission Date: 20060218
  Serious: Yes (Other)
  Sender: FDA-Public Use
  Company Number: None

PATIENT
  Age: 36 Year
  Sex: Male
  Weight: 84.8 kg

DRUGS (1)
  1. LAMOTRIGINE [Suspect]
     Indication: ANTIDEPRESSANT THERAPY
     Dosage: 50 MG, 25 MG, BID ORAL
     Route: 048
     Dates: start: 20050525, end: 20050610

REACTIONS (1)
  - RASH [None]
